FAERS Safety Report 18223584 (Version 1)
Quarter: 2020Q3

REPORT INFORMATION
  Report Type: Spontaneous
  Country: US (occurrence: US)
  Receive Date: 20200902
  Receipt Date: 20200902
  Transmission Date: 20201103
  Serious: No
  Sender: FDA-Public Use
  Company Number: US-009507513-2008USA012902

PATIENT
  Age: 20 Year
  Sex: Female

DRUGS (13)
  1. ACETAMINOPHEN. [Suspect]
     Active Substance: ACETAMINOPHEN
     Indication: PYREXIA
     Dosage: UNK
  2. DOXYLAMINE SUCCINATE (+) PYRIDOXINE HYDROCHLORIDE [Suspect]
     Active Substance: DOXYLAMINE SUCCINATE\PYRIDOXINE HYDROCHLORIDE
     Indication: NAUSEA
     Dosage: 10 MILLIGRAM, QD
     Route: 048
  3. PROMETHAZINE [Suspect]
     Active Substance: PROMETHAZINE HYDROCHLORIDE
     Dosage: 25 MILLIGRAM, QID
     Route: 042
  4. FAMOTIDINE. [Suspect]
     Active Substance: FAMOTIDINE
     Indication: NAUSEA
     Dosage: UNK
  5. CALCIUM CARBONATE. [Suspect]
     Active Substance: CALCIUM CARBONATE
     Indication: NAUSEA
     Dosage: UNK
  6. THIAMINE. [Suspect]
     Active Substance: THIAMINE
     Indication: WERNICKE^S ENCEPHALOPATHY
     Dosage: 100 MILLIGRAM, QD
     Route: 042
  7. RINGER (CALCIUM CHLORIDE DIHYDRATE (+) POTASSIUM CHLORIDE (+) SODIUM C [Suspect]
     Active Substance: CALCIUM CHLORIDE\POTASSIUM CHLORIDE\SODIUM CHLORIDE
     Indication: NAUSEA
     Dosage: 1 LITER BOLUS
  8. REMERON [Suspect]
     Active Substance: MIRTAZAPINE
     Indication: HYPEREMESIS GRAVIDARUM
     Dosage: 7.5 MILLIGRAM, 30 MINUTES BEFORE EACH MEAL (TID)
     Route: 048
  9. VANCOMYCIN [Suspect]
     Active Substance: VANCOMYCIN
     Indication: DEVICE RELATED INFECTION
     Dosage: UNK
  10. PREDNISOLONE. [Suspect]
     Active Substance: PREDNISOLONE
     Indication: HYPEREMESIS GRAVIDARUM
     Dosage: UNK
  11. ONDANSETRON [Suspect]
     Active Substance: ONDANSETRON
     Indication: NAUSEA
     Dosage: 8 MILLIGRAM, 3 TIMES PER DAY (TID)
     Route: 042
  12. OMEPRAZOLE. [Suspect]
     Active Substance: OMEPRAZOLE
     Indication: NAUSEA
     Dosage: UNK
  13. PREDNISOLONE. [Suspect]
     Active Substance: PREDNISOLONE
     Dosage: TAPERED DOSE

REACTIONS (2)
  - Off label use [Unknown]
  - Maternal exposure during pregnancy [Recovered/Resolved]
